FAERS Safety Report 7552246-1 (Version None)
Quarter: 2011Q2

REPORT INFORMATION
  Report Type: 
  Country: None (occurrence: None)
  Receive Date: 20110616
  Receipt Date: 20040623
  Transmission Date: 20111010
  Serious: Yes (Death, Hospitalization)
  Sender: FDA-Public Use
  Company Number: PHHO2004JP08286

PATIENT
  Sex: Female
  Weight: 42 kg

DRUGS (8)
  1. DIOVAN [Suspect]
     Indication: RENAL FAILURE
     Dosage: 80 MG, QD
     Route: 048
     Dates: start: 20030606
  2. ADALAT CC [Suspect]
     Indication: HYPERTENSION
     Dosage: 40 MG, DAILY
     Route: 048
     Dates: start: 20030730
  3. PERSANTIN [Suspect]
     Indication: HYPERTENSION
     Dosage: 75 MG, DAILY
     Route: 048
     Dates: start: 20030606
  4. NORVASC [Concomitant]
     Indication: HYPERTENSION
     Dosage: 5 MG, QD
     Dates: start: 20030606, end: 20030729
  5. DIOVAN [Suspect]
     Dosage: 80 MG, BID
     Route: 048
     Dates: start: 20030618
  6. LASIX [Concomitant]
     Indication: HYPERTENSION
     Dosage: 10 MG, UNK
     Route: 048
     Dates: start: 20030606
  7. EBRANTIL [Suspect]
     Indication: HYPERTENSION
     Dosage: 30 MG,DAILY
     Dates: start: 20030606
  8. KREMEZIN [Concomitant]
     Indication: RENAL FAILURE
     Dosage: 6 G, UNK
     Route: 048
     Dates: start: 20030819

REACTIONS (4)
  - RESPIRATORY ARREST [None]
  - RENAL FAILURE [None]
  - GENERALISED OEDEMA [None]
  - BLOOD PRESSURE INADEQUATELY CONTROLLED [None]
